FAERS Safety Report 5475396-2 (Version None)
Quarter: 2007Q4

REPORT INFORMATION
  Report Type: 
  Country: None (occurrence: None)
  Receive Date: 20071003
  Receipt Date: 20070919
  Transmission Date: 20080405
  Serious: Yes (Other)
  Sender: FDA-Public Use
  Company Number: PHBS2007JP15252

PATIENT
  Sex: Female

DRUGS (4)
  1. NEORAL [Suspect]
     Indication: DERMATOMYOSITIS
     Dosage: 160MG/D
     Route: 048
     Dates: start: 20070824
  2. NEORAL [Suspect]
     Dosage: 120MG/D
     Route: 048
     Dates: start: 20070901
  3. PREDNISOLONE [Concomitant]
     Indication: DERMATOMYOSITIS
     Dosage: 25 MG/DAY
     Route: 065
     Dates: start: 20070501
  4. ANTIHYPERTENSIVES [Concomitant]
     Indication: HYPERTENSION
     Route: 048

REACTIONS (4)
  - BLOOD CREATININE INCREASED [None]
  - BLOOD POTASSIUM INCREASED [None]
  - BLOOD SODIUM DECREASED [None]
  - VISUAL ACUITY REDUCED [None]
